FAERS Safety Report 4726263-0 (Version None)
Quarter: 2005Q3

REPORT INFORMATION
  Report Type: 
  Country: None (occurrence: None)
  Receive Date: 20050725
  Receipt Date: 20050718
  Transmission Date: 20060218
  Serious: Yes (Disabling)
  Sender: FDA-Public Use
  Company Number: 200511958GDS

PATIENT
  Age: 64 Year
  Sex: Male
  Weight: 80.5 kg

DRUGS (8)
  1. ACTIMAX                      (MOXIFLOXACIN) [Suspect]
     Indication: BRONCHITIS
     Dosage: 400 MG, TOTAL DAILY, ORAL
     Route: 048
     Dates: start: 20050610, end: 20050617
  2. ACTIMAX                      (MOXIFLOXACIN) [Suspect]
     Indication: PURULENCE
     Dosage: 400 MG, TOTAL DAILY, ORAL
     Route: 048
     Dates: start: 20050610, end: 20050617
  3. DIAPHAL [Concomitant]
  4. MARCUMAR [Concomitant]
  5. BENALAPRIL [Concomitant]
  6. QUERTO [Concomitant]
  7. TRAMADOL HCL [Concomitant]
  8. TRIAMCINOLONE [Concomitant]

REACTIONS (1)
  - TENDON RUPTURE [None]
